FAERS Safety Report 18376507 (Version 1)
Quarter: 2020Q4

REPORT INFORMATION
  Report Type: Spontaneous
  Country: US (occurrence: US)
  Receive Date: 20201009
  Receipt Date: 20201009
  Transmission Date: 20210114
  Serious: Yes (Death)
  Sender: FDA-Public Use
  Company Number: None

PATIENT
  Age: 74 Year
  Sex: Male

DRUGS (20)
  1. VENTOLIN [Concomitant]
     Active Substance: ALBUTEROL SULFATE
  2. BENZONATATE. [Concomitant]
     Active Substance: BENZONATATE
  3. CYCLOBENZAPR [Concomitant]
     Active Substance: CYCLOBENZAPRINE
  4. ELIQUIS [Concomitant]
     Active Substance: APIXABAN
  5. SOTALOL. [Concomitant]
     Active Substance: SOTALOL
  6. VITAMIN D [Concomitant]
     Active Substance: VITAMIN D NOS
  7. GABAPENTIN. [Concomitant]
     Active Substance: GABAPENTIN
  8. POLYETH [Concomitant]
  9. LIDOCAINE. [Concomitant]
     Active Substance: LIDOCAINE
  10. LOSARTAN. [Concomitant]
     Active Substance: LOSARTAN
  11. PANTOPRAZOLE [Concomitant]
     Active Substance: PANTOPRAZOLE
  12. SENNA [Concomitant]
     Active Substance: SENNA LEAF\SENNOSIDES\SENNOSIDES A AND B
  13. ESBRIET [Suspect]
     Active Substance: PIRFENIDONE
     Indication: IDIOPATHIC PULMONARY FIBROSIS
     Route: 048
     Dates: start: 20190829
  14. INSULIN [Concomitant]
     Active Substance: INSULIN NOS
  15. LATANOPROST. [Concomitant]
     Active Substance: LATANOPROST
  16. ACETAMIN [Concomitant]
     Active Substance: ACETAMINOPHEN
  17. MI-ACID [Concomitant]
  18. VERAPAMIL [Concomitant]
     Active Substance: VERAPAMIL HYDROCHLORIDE
  19. ATORVASTATIN [Concomitant]
     Active Substance: ATORVASTATIN
  20. OXYCODONE [Concomitant]
     Active Substance: OXYCODONE

REACTIONS (1)
  - Death [None]

NARRATIVE: CASE EVENT DATE: 20201005
